FAERS Safety Report 15669681 (Version 4)
Quarter: 2019Q2

REPORT INFORMATION
  Report Type: Report from Study
  Country: US (occurrence: US)
  Receive Date: 20181129
  Receipt Date: 20190607
  Transmission Date: 20190711
  Serious: Yes (Other)
  Sender: FDA-Public Use
  Company Number: PHEH2018US050354

PATIENT
  Sex: Female

DRUGS (2)
  1. COSENTYX [Suspect]
     Active Substance: SECUKINUMAB
     Dosage: 300 MG, QMO
     Route: 058
  2. COSENTYX [Suspect]
     Active Substance: SECUKINUMAB
     Indication: PSORIATIC ARTHROPATHY
     Dosage: 150 MG, UNK
     Route: 058

REACTIONS (7)
  - Pain in extremity [Unknown]
  - Psoriatic arthropathy [Unknown]
  - Diabetes mellitus [Unknown]
  - Gait disturbance [Unknown]
  - Pain [Recovering/Resolving]
  - Drug ineffective [Unknown]
  - Stress [Unknown]
